FAERS Safety Report 23219581 (Version 1)
Quarter: 2023Q4

REPORT INFORMATION
  Report Type: Spontaneous
  Country: CN (occurrence: CN)
  Receive Date: 20231122
  Receipt Date: 20231122
  Transmission Date: 20240110
  Serious: Yes (Hospitalization, Other)
  Sender: FDA-Public Use
  Company Number: CN-BEIGENE-BGN-2023-013491

PATIENT
  Age: 73 Year
  Sex: Male
  Weight: 68 kg

DRUGS (7)
  1. TISLELIZUMAB [Suspect]
     Active Substance: TISLELIZUMAB
     Indication: Lung neoplasm malignant
     Dosage: 200 MG (D2) ROUTE OF ADMIN (FREE TEXT): INTRAVENOUS DRIP
     Route: 065
     Dates: start: 20231029
  2. DOCETAXEL [Suspect]
     Active Substance: DOCETAXEL\DOCETAXEL ANHYDROUS
     Indication: Lung neoplasm malignant
     Dosage: 120 MG (D1) ROUTE OF ADMIN (FREE TEXT): INTRAVENOUS DRIP
     Route: 042
     Dates: start: 20231028
  3. GRANULOSTIM [Concomitant]
     Indication: Asthma
     Dosage: 300 UG, QD
     Route: 065
     Dates: start: 20231104, end: 20231107
  4. GRANULOSTIM [Concomitant]
     Indication: Neutrophil count abnormal
  5. GRANULOSTIM [Concomitant]
     Indication: Productive cough
  6. GRANULOSTIM [Concomitant]
     Indication: White blood cell count increased
  7. OPRELVEKIN [Concomitant]
     Active Substance: OPRELVEKIN
     Indication: Product used for unknown indication
     Dosage: 1.5 MG
     Route: 058
     Dates: start: 20231106, end: 20231107

REACTIONS (3)
  - Myelosuppression [Recovering/Resolving]
  - Pyrexia [Recovering/Resolving]
  - Bronchiolitis [Recovering/Resolving]

NARRATIVE: CASE EVENT DATE: 20231104
